FAERS Safety Report 9472133 (Version 2)
Quarter: 2013Q3

REPORT INFORMATION
  Report Type: Spontaneous
  Country: IT (occurrence: IT)
  Receive Date: 20130823
  Receipt Date: 20130912
  Transmission Date: 20140515
  Serious: Yes (Hospitalization)
  Sender: FDA-Public Use
  Company Number: IT-BRISTOL-MYERS SQUIBB COMPANY-19208123

PATIENT
  Age: 82 Year
  Sex: Female

DRUGS (3)
  1. COUMADIN [Suspect]
     Indication: ATRIAL FIBRILLATION
  2. FUROSEMIDE [Concomitant]
     Route: 048
  3. LANOXIN [Concomitant]
     Dosage: 1DF:0.0625 UNITS NOS
     Route: 048

REACTIONS (4)
  - Lung disorder [Unknown]
  - Dyspnoea [Unknown]
  - International normalised ratio increased [Unknown]
  - Overdose [Unknown]
